FAERS Safety Report 11403250 (Version 1)
Quarter: 2015Q3

REPORT INFORMATION
  Report Type: Spontaneous
  Country: IT (occurrence: IT)
  Receive Date: 20150821
  Receipt Date: 20150821
  Transmission Date: 20151125
  Serious: Yes (Disabling)
  Sender: FDA-Public Use
  Company Number: PHHY2015IT100076

PATIENT
  Age: 83 Year
  Sex: Male

DRUGS (3)
  1. ALKERAN [Concomitant]
     Active Substance: MELPHALAN
     Indication: PLASMA CELL MYELOMA
     Dosage: UNK
     Route: 065
     Dates: start: 20070601
  2. ZOMETA [Suspect]
     Active Substance: ZOLEDRONIC ACID
     Indication: PLASMA CELL MYELOMA
     Dosage: 4 MG, CYCLIC FREQUENCY
     Route: 065
     Dates: start: 20090601, end: 20110707
  3. THALIDOMIDE CELGENE [Concomitant]
     Active Substance: THALIDOMIDE
     Indication: PLASMA CELL MYELOMA
     Dosage: UNK
     Route: 048
     Dates: start: 20110601

REACTIONS (4)
  - Osteonecrosis of jaw [Unknown]
  - Primary sequestrum [Unknown]
  - Bone disorder [Unknown]
  - Toothache [Unknown]

NARRATIVE: CASE EVENT DATE: 20140109
